FAERS Safety Report 10914034 (Version 3)
Quarter: 2016Q4

REPORT INFORMATION
  Report Type: Report from Study
  Country: GB (occurrence: GB)
  Receive Date: 20150313
  Receipt Date: 20161005
  Transmission Date: 20170206
  Serious: Yes (Other)
  Sender: FDA-Public Use
  Company Number: GB-ROCHE-1550081

PATIENT

DRUGS (3)
  1. ALTEPLASE [Suspect]
     Active Substance: ALTEPLASE
     Dosage: 0.9 MG PER KG TO A MAXIMUM 90 MG, WITH 10% OF DOSE AS INITIAL BOLUS, FOLLOWED BY 90% IN A 1 H INFUSI
     Route: 042
  2. ALTEPLASE [Suspect]
     Active Substance: ALTEPLASE
     Indication: ISCHAEMIC STROKE
     Dosage: 0.9 MG PER KG TO A MAXIMUM 90 MG, WITH 10% OF DOSE AS INITIAL BOLUS
     Route: 040
  3. TENECTEPLASE [Suspect]
     Active Substance: TENECTEPLASE
     Indication: ISCHAEMIC STROKE
     Dosage: 0.25 MG PER KG, TO A MAXIMUM 25 MG AS A SINGLE BOLUS
     Route: 040

REACTIONS (15)
  - Constipation [Unknown]
  - Diarrhoea [Unknown]
  - Ischaemic stroke [Unknown]
  - Gastrointestinal haemorrhage [Unknown]
  - Embolism venous [Unknown]
  - Atrial fibrillation [Unknown]
  - Renal impairment [Unknown]
  - Cerebral haemorrhage [Unknown]
  - Pneumonia [Unknown]
  - Fall [Unknown]
  - Abdominal pain [Unknown]
  - Dehydration [Unknown]
  - Rectal haemorrhage [Unknown]
  - Hypotension [Unknown]
  - Postmenopausal haemorrhage [Unknown]
